FAERS Safety Report 25311311 (Version 1)
Quarter: 2025Q2

REPORT INFORMATION
  Report Type: Spontaneous
  Country: HR (occurrence: HR)
  Receive Date: 20250514
  Receipt Date: 20250514
  Transmission Date: 20250716
  Serious: Yes (Death)
  Sender: ROCHE
  Company Number: HR-ROCHE-10000282395

PATIENT
  Age: 77 Year
  Sex: Female

DRUGS (1)
  1. GLOFITAMAB [Suspect]
     Active Substance: GLOFITAMAB
     Indication: Diffuse large B-cell lymphoma
     Dosage: 2.5 MG OF COLUMVI WAS ADMINISTERED VERY SLOWLY, DURING 12 HCRS
     Route: 042
     Dates: start: 20250429, end: 20250429

REACTIONS (1)
  - Cytokine release syndrome [Fatal]

NARRATIVE: CASE EVENT DATE: 20250429
